FAERS Safety Report 10702359 (Version 1)
Quarter: 2015Q1

REPORT INFORMATION
  Report Type: Spontaneous
  Country: US (occurrence: US)
  Receive Date: 20150109
  Receipt Date: 20150109
  Transmission Date: 20150721
  Serious: Yes (Life-Threatening, Hospitalization, Other)
  Sender: FDA-Public Use
  Company Number: US-GLAXOSMITHKLINE-US2015GSK000946

PATIENT
  Sex: Female

DRUGS (6)
  1. IMITREX [Suspect]
     Active Substance: SUMATRIPTAN\SUMATRIPTAN SUCCINATE
     Indication: MIGRAINE
     Dosage: 50 MG, 2 - 3 TIMES A MONTH
  2. VITAMIN D [Concomitant]
     Active Substance: CHOLECALCIFEROL
  3. LASIX [Concomitant]
     Active Substance: FUROSEMIDE
  4. LOPRESSOR [Concomitant]
     Active Substance: METOPROLOL TARTRATE
  5. XANAX [Concomitant]
     Active Substance: ALPRAZOLAM
  6. ASPIRIN. [Concomitant]
     Active Substance: ASPIRIN

REACTIONS (16)
  - Fibromyalgia [Unknown]
  - Cardiac disorder [Unknown]
  - Blood cholesterol abnormal [Unknown]
  - Pain [Unknown]
  - Stent placement [Unknown]
  - Device dislocation [Unknown]
  - Angioplasty [Unknown]
  - Dyspnoea [Not Recovered/Not Resolved]
  - Transient ischaemic attack [Unknown]
  - Lung disorder [Unknown]
  - Bipolar disorder [Unknown]
  - Arterial occlusive disease [Unknown]
  - Vascular bypass dysfunction [Unknown]
  - Chest pain [Unknown]
  - Asthenia [Not Recovered/Not Resolved]
  - Depression [Unknown]

NARRATIVE: CASE EVENT DATE: 1995
